FAERS Safety Report 23786042 (Version 2)
Quarter: 2024Q4

REPORT INFORMATION
  Report Type: Report from Study
  Country: US (occurrence: US)
  Receive Date: 20240426
  Receipt Date: 20241206
  Transmission Date: 20250115
  Serious: Yes (Hospitalization, Other)
  Sender: JAZZ
  Company Number: US-JAZZ PHARMACEUTICALS-2024-US-006576

PATIENT
  Age: 37 Year
  Sex: Male

DRUGS (3)
  1. EPIDIOLEX [Suspect]
     Active Substance: CANNABIDIOL
     Indication: Epilepsy
     Dosage: 3.4 MILLILITER, BID
     Route: 048
     Dates: start: 202403
  2. EPIDIOLEX [Suspect]
     Active Substance: CANNABIDIOL
     Dosage: UNK (5.1 ML BY MOUTH EVERY MORNING AND GIVE 6.8 ML BY MOUTH EVERY EVENING)
     Route: 048
     Dates: start: 202403, end: 20241129
  3. EPIDIOLEX [Suspect]
     Active Substance: CANNABIDIOL
     Dosage: 6.8 MILLILITER, BID
     Dates: start: 202403, end: 20241129

REACTIONS (3)
  - Seizure [Unknown]
  - Seizure [Unknown]
  - Emergency care [Unknown]

NARRATIVE: CASE EVENT DATE: 20241124
